FAERS Safety Report 5041720-8 (Version None)
Quarter: 2006Q2

REPORT INFORMATION
  Report Type: 
  Country: None (occurrence: None)
  Receive Date: 20060630
  Receipt Date: 20060620
  Transmission Date: 20061013
  Serious: Yes (Other)
  Sender: FDA-Public Use
  Company Number: 2006079219

PATIENT
  Sex: Male
  Weight: 86.1834 kg

DRUGS (3)
  1. LIPITOR [Suspect]
     Indication: BLOOD CHOLESTEROL
     Dosage: 20 MG (20 MG, 1 IN 1 D)
     Dates: start: 19970101
  2. PSYLLIUM HUSK (ISPAGHULA HUSK) [Concomitant]
  3. GAS-X (SIMETICONE) [Concomitant]

REACTIONS (3)
  - ABDOMINAL DISCOMFORT [None]
  - ABDOMINAL DISTENSION [None]
  - FLATULENCE [None]
